FAERS Safety Report 6391471-2 (Version None)
Quarter: 2009Q4

REPORT INFORMATION
  Report Type: 
  Country: None (occurrence: None)
  Receive Date: 20091007
  Receipt Date: 20090929
  Transmission Date: 20100525
  Serious: Yes (Other)
  Sender: FDA-Public Use
  Company Number: CA-JNJFOC-20090908448

PATIENT
  Sex: Female

DRUGS (2)
  1. REMINYL ER [Suspect]
     Indication: DRUG USE FOR UNKNOWN INDICATION
     Route: 065
  2. THYROID THERAPY [Concomitant]
     Indication: THYROID DISORDER
     Route: 065

REACTIONS (1)
  - HEART RATE INCREASED [None]
